FAERS Safety Report 7942437-X (Version None)
Quarter: 2011Q4

REPORT INFORMATION
  Report Type: 
  Country: None (occurrence: None)
  Receive Date: 20111128
  Receipt Date: 20111118
  Transmission Date: 20120403
  Serious: Yes (Hospitalization)
  Sender: FDA-Public Use
  Company Number: US-GLAXOSMITHKLINE-A0871707A

PATIENT
  Sex: Female
  Weight: 110.9 kg

DRUGS (7)
  1. ATACAND [Concomitant]
  2. AVANDAMET [Suspect]
     Indication: DIABETES MELLITUS
     Route: 048
     Dates: end: 20051001
  3. ALLOPURINOL [Concomitant]
  4. ZOCOR [Concomitant]
  5. ZEGERID [Concomitant]
  6. AVANDIA [Suspect]
     Indication: DIABETES MELLITUS
     Dosage: 8MG PER DAY
     Route: 048
     Dates: start: 20051001, end: 20090201
  7. LISINOPRIL [Concomitant]

REACTIONS (5)
  - FRACTURE [None]
  - MYOCARDIAL INFARCTION [None]
  - CARDIAC DISORDER [None]
  - CARDIAC FAILURE CONGESTIVE [None]
  - CORONARY ARTERY DISEASE [None]
